FAERS Safety Report 7693688-3 (Version None)
Quarter: 2011Q3

REPORT INFORMATION
  Report Type: 
  Country: None (occurrence: None)
  Receive Date: 20110816
  Receipt Date: 20110811
  Transmission Date: 20111222
  Serious: Yes (Hospitalization, Other)
  Sender: FDA-Public Use
  Company Number: 201110463

PATIENT
  Age: 20 Year
  Sex: Male

DRUGS (1)
  1. BACLOFEN [Suspect]
     Indication: MUSCLE SPASTICITY
     Dosage: MCG, DAILY, INTRATHECAL-SEE B
     Route: 037

REACTIONS (3)
  - IMPLANT SITE INFECTION [None]
  - LOCALISED INTRAABDOMINAL FLUID COLLECTION [None]
  - C-REACTIVE PROTEIN INCREASED [None]
